FAERS Safety Report 4927218-3 (Version None)
Quarter: 2006Q1

REPORT INFORMATION
  Report Type: 
  Country: None (occurrence: None)
  Receive Date: 20060228
  Receipt Date: 20050202
  Transmission Date: 20060701
  Serious: No
  Sender: FDA-Public Use
  Company Number: US-GLAXOSMITHKLINE-A0543503A

PATIENT
  Age: 49 Year
  Sex: Female
  Weight: 61.4 kg

DRUGS (5)
  1. IMITREX [Suspect]
     Indication: CLUSTER HEADACHE
     Dosage: 6MG AS REQUIRED
     Route: 058
     Dates: start: 20050101
  2. LIDOCAINE [Concomitant]
     Route: 045
  3. NEURONTIN [Concomitant]
  4. PREDNISONE [Concomitant]
  5. BETABLOCKER [Concomitant]

REACTIONS (2)
  - INJECTION SITE PAIN [None]
  - PARAESTHESIA [None]
